FAERS Safety Report 19004279 (Version 1)
Quarter: 2021Q1

REPORT INFORMATION
  Report Type: Other
  Country: CH (occurrence: CH)
  Receive Date: 20210313
  Receipt Date: 20210313
  Transmission Date: 20210420
  Serious: Yes (Other)
  Sender: FDA-Public Use
  Company Number: CH-ROCHE-2783972

PATIENT

DRUGS (4)
  1. TOCILIZUMAB. [Suspect]
     Active Substance: TOCILIZUMAB
     Indication: GIANT CELL ARTERITIS
     Route: 058
  2. TOCILIZUMAB. [Suspect]
     Active Substance: TOCILIZUMAB
     Indication: VISUAL IMPAIRMENT
  3. TOCILIZUMAB. [Suspect]
     Active Substance: TOCILIZUMAB
     Indication: GIANT CELL ARTERITIS
     Route: 042
  4. TOCILIZUMAB. [Suspect]
     Active Substance: TOCILIZUMAB
     Indication: VISUAL IMPAIRMENT

REACTIONS (7)
  - Transient ischaemic attack [Unknown]
  - Acute myocardial infarction [Unknown]
  - Pulmonary embolism [Unknown]
  - Cerebrovascular accident [Unknown]
  - Angiopathy [Unknown]
  - Aortic aneurysm [Unknown]
  - Embolism venous [Unknown]
